FAERS Safety Report 8954371 (Version 1)
Quarter: 2012Q4

REPORT INFORMATION
  Report Type: Spontaneous
  Country: GB (occurrence: None)
  Receive Date: 20121130
  Receipt Date: 20121130
  Transmission Date: 20130627
  Serious: Yes (Life-Threatening, Hospitalization)
  Sender: FDA-Public Use
  Company Number: GER/UKI/12/0026840

PATIENT
  Age: 38 Year
  Sex: Male
  Weight: 85 kg

DRUGS (2)
  1. RISPERIDONE (RISPERIDONE) [Suspect]
     Indication: AUDITORY HALLUCINATIONS
     Route: 048
     Dates: start: 20080928, end: 20120131
  2. MIRTAZAPINE (MIRTAZAPINE) [Concomitant]

REACTIONS (14)
  - Gastrooesophageal reflux disease [None]
  - Intestinal obstruction [None]
  - Chest pain [None]
  - Constipation [None]
  - Drug withdrawal syndrome [None]
  - Cardiac disorder [None]
  - Hiatus hernia [None]
  - Penile infection [None]
  - Rash [None]
  - Diarrhoea [None]
  - Dysphagia [None]
  - Syncope [None]
  - Vomiting [None]
  - Loss of consciousness [None]
